FAERS Safety Report 23991658 (Version 1)
Quarter: 2024Q2

REPORT INFORMATION
  Report Type: Other
  Country: CA (occurrence: CA)
  Receive Date: 20240619
  Receipt Date: 20240619
  Transmission Date: 20240716
  Serious: Yes (Hospitalization)
  Sender: FDA-Public Use
  Company Number: CA-B.Braun Medical Inc.-2158327

PATIENT
  Age: 11 Year
  Sex: Female

DRUGS (4)
  1. SODIUM CHLORIDE [Suspect]
     Active Substance: SODIUM CHLORIDE
     Indication: Colostomy
  2. BISACODYL [Suspect]
     Active Substance: BISACODYL
  3. PEG 3350 [Suspect]
     Active Substance: POLYETHYLENE GLYCOL 3350
  4. GLYCERIN [Suspect]
     Active Substance: GLYCERIN

REACTIONS (5)
  - Vomiting [Recovered/Resolved]
  - Product administered to patient of inappropriate age [Recovered/Resolved]
  - Off label use [Recovered/Resolved]
  - Abdominal pain [Recovered/Resolved]
  - Abdominal distension [Recovered/Resolved]
